FAERS Safety Report 13903496 (Version 1)
Quarter: 2017Q3

REPORT INFORMATION
  Report Type: Spontaneous
  Country: CO (occurrence: CO)
  Receive Date: 20170824
  Receipt Date: 20170824
  Transmission Date: 20171127
  Serious: Yes (Other)
  Sender: FDA-Public Use
  Company Number: CO-BAUSCH-BL-2017-002309

PATIENT
  Age: 31 Year
  Sex: Female
  Weight: 58 kg

DRUGS (4)
  1. WELLBUTRIN XL [Suspect]
     Active Substance: BUPROPION HYDROCHLORIDE
     Route: 065
  2. WELLBUTRIN XL [Suspect]
     Active Substance: BUPROPION HYDROCHLORIDE
     Indication: BIPOLAR DISORDER
     Route: 065
  3. LAMICTAL [Suspect]
     Active Substance: LAMOTRIGINE
     Dosage: DOSE DECREASED
     Route: 065
  4. LAMICTAL [Suspect]
     Active Substance: LAMOTRIGINE
     Indication: BIPOLAR DISORDER
     Route: 065

REACTIONS (3)
  - Abortion spontaneous [Unknown]
  - Exposure during pregnancy [Unknown]
  - Depression [Unknown]
